FAERS Safety Report 7382513-6 (Version None)
Quarter: 2011Q1

REPORT INFORMATION
  Report Type: 
  Country: None (occurrence: None)
  Receive Date: 20110329
  Receipt Date: 20110321
  Transmission Date: 20110831
  Serious: Yes (Hospitalization)
  Sender: FDA-Public Use
  Company Number: HR-BAYER-2011-024974

PATIENT
  Age: 84 Year
  Sex: Female
  Weight: 75 kg

DRUGS (8)
  1. MOVALIS [Concomitant]
     Indication: OSTEOARTHRITIS
     Dosage: 7.5 MG, QD
     Route: 048
     Dates: start: 19980101
  2. WARFARIN SODIUM [Interacting]
     Indication: ATRIAL FIBRILLATION
     Dosage: 4.5 MG, UNK
     Route: 048
     Dates: start: 19961001
  3. ISOPTIN [Concomitant]
     Indication: ATRIAL FIBRILLATION
     Dosage: 2 PER 1 DAY
     Route: 048
     Dates: start: 19960801
  4. HEFEROL [Concomitant]
     Indication: ANAEMIA
     Dosage: 2 PER 1 DAY
     Route: 048
     Dates: start: 20100101
  5. LANITOP [Concomitant]
     Indication: CARDIOMYOPATHY
     Dosage: 1 DF, QD
     Route: 048
     Dates: start: 19960801
  6. CLOTRIMAZOLE [Suspect]
     Indication: VULVOVAGINITIS
     Dosage: UNK
     Route: 067
     Dates: start: 20110221
  7. NEXIUM [Concomitant]
     Indication: PROPHYLAXIS
     Dosage: 40 MG, UNK
     Route: 048
     Dates: start: 19961001
  8. LETIZEN [Concomitant]
     Indication: DERMATITIS
     Dosage: 2 PER 1 DAY
     Route: 048
     Dates: start: 20110216

REACTIONS (2)
  - INTERNATIONAL NORMALISED RATIO INCREASED [None]
  - HAEMATURIA [None]
